FAERS Safety Report 17284514 (Version 1)
Quarter: 2020Q1

REPORT INFORMATION
  Report Type: Spontaneous
  Country: TR (occurrence: TR)
  Receive Date: 20200117
  Receipt Date: 20200117
  Transmission Date: 20200409
  Serious: Yes (Death, Other)
  Sender: FDA-Public Use
  Company Number: TR-ASTELLAS-2020US001455

PATIENT
  Sex: Male

DRUGS (4)
  1. LUTETIUM (LU 177) [Suspect]
     Active Substance: LUTETIUM LU-177
     Indication: HORMONE-REFRACTORY PROSTATE CANCER
     Dosage: UNK UNK, CYCLIC (6 CYCLES)
     Route: 065
     Dates: start: 201803, end: 201811
  2. DOCETAXEL. [Concomitant]
     Active Substance: DOCETAXEL
     Dosage: UNK UNK, ONCE WEEKLY
     Route: 065
  3. DOCETAXEL. [Concomitant]
     Active Substance: DOCETAXEL
     Indication: PRODUCT USED FOR UNKNOWN INDICATION
     Dosage: UNK UNK, CYCLIC (6 CYCLES)
     Route: 065
     Dates: start: 201709, end: 201801
  4. XTANDI [Suspect]
     Active Substance: ENZALUTAMIDE
     Indication: HORMONE-REFRACTORY PROSTATE CANCER
     Route: 048
     Dates: start: 201802

REACTIONS (5)
  - Fatigue [Unknown]
  - Anaemia [Unknown]
  - Death [Fatal]
  - Thrombocytopenia [Unknown]
  - Dry mouth [Unknown]

NARRATIVE: CASE EVENT DATE: 2018
